FAERS Safety Report 7588037-5 (Version None)
Quarter: 2011Q3

REPORT INFORMATION
  Report Type: 
  Country: None (occurrence: None)
  Receive Date: 20110705
  Receipt Date: 20110628
  Transmission Date: 20111222
  Serious: No
  Sender: FDA-Public Use
  Company Number: US-PFIZER INC-2011145396

PATIENT
  Age: 56 Year
  Sex: Female

DRUGS (3)
  1. ALPRAZOLAM [Suspect]
     Indication: ANXIETY
     Dosage: 1 MG, UNK
  2. IMMUNOGLOBULINS [Concomitant]
     Dosage: UNK
     Route: 042
  3. LEVOXYL [Concomitant]
     Indication: THYROID HORMONE REPLACEMENT THERAPY
     Dosage: UNK

REACTIONS (1)
  - URTICARIA [None]
